FAERS Safety Report 9421153 (Version 1)
Quarter: 2013Q3

REPORT INFORMATION
  Report Type: Spontaneous
  Country: US (occurrence: US)
  Receive Date: 20130725
  Receipt Date: 20130725
  Transmission Date: 20140515
  Serious: Yes (Other)
  Sender: FDA-Public Use
  Company Number: US-UCBSA-092242

PATIENT
  Sex: Female

DRUGS (2)
  1. VIMPAT [Suspect]
  2. KEPPRA [Suspect]

REACTIONS (2)
  - Convulsion [Unknown]
  - Shunt malfunction [Unknown]
